FAERS Safety Report 18403221 (Version 1)
Quarter: 2020Q4

REPORT INFORMATION
  Report Type: Other
  Country: US (occurrence: US)
  Receive Date: 20201019
  Receipt Date: 20201019
  Transmission Date: 20210114
  Serious: Yes (Other)
  Sender: FDA-Public Use
  Company Number: US-ROCHE-2691835

PATIENT
  Age: 20 Year
  Sex: Male

DRUGS (10)
  1. FILGRASTIM [Concomitant]
     Active Substance: FILGRASTIM
  2. METHYLPREDNISOLONE. [Suspect]
     Active Substance: METHYLPREDNISOLONE
     Indication: INTESTINAL TRANSPLANT
     Route: 065
  3. ALEMTUZUMAB [Concomitant]
     Active Substance: ALEMTUZUMAB
  4. PREDNISONE. [Suspect]
     Active Substance: PREDNISONE
     Indication: INTESTINAL TRANSPLANT
     Dosage: FOLLOWED BY A 12-DAY TAPER
     Route: 048
  5. MIRTAZAPINE. [Concomitant]
     Active Substance: MIRTAZAPINE
  6. MARAVIROC [Concomitant]
     Active Substance: MARAVIROC
  7. DEXAMETHASONE. [Suspect]
     Active Substance: DEXAMETHASONE
     Indication: INTESTINAL TRANSPLANT
     Route: 065
  8. MYCOPHENOLATE MOFETIL. [Suspect]
     Active Substance: MYCOPHENOLATE MOFETIL
     Indication: INTESTINAL TRANSPLANT
     Route: 065
  9. VALGANCICLOVIR. [Suspect]
     Active Substance: VALGANCICLOVIR
     Indication: ANTIVIRAL PROPHYLAXIS
     Route: 065
  10. TACROLIMUS. [Suspect]
     Active Substance: TACROLIMUS
     Indication: INTESTINAL TRANSPLANT
     Dosage: 7.8-10 NG/ML
     Route: 065

REACTIONS (4)
  - Neutropenia [Recovered/Resolved]
  - JC virus infection [Unknown]
  - Cytomegalovirus infection [Unknown]
  - Epstein-Barr virus infection [Unknown]
